FAERS Safety Report 21709921 (Version 1)
Quarter: 2022Q4

REPORT INFORMATION
  Report Type: Spontaneous
  Country: US (occurrence: US)
  Receive Date: 20221211
  Receipt Date: 20221211
  Transmission Date: 20230113
  Serious: Yes (Hospitalization, Other)
  Sender: FDA-Public Use
  Company Number: US-PIRAMAL CRITICAL CARE LIMITED-2022-PEL-000729

PATIENT

DRUGS (6)
  1. BACLOFEN [Suspect]
     Active Substance: BACLOFEN
     Indication: Muscle spasticity
     Dosage: 1598.3 MCG/DAY
     Route: 037
  2. BACLOFEN [Suspect]
     Active Substance: BACLOFEN
     Indication: Hypertonia
     Dosage: 1101 MCG/DAY
     Route: 037
  3. BACLOFEN [Suspect]
     Active Substance: BACLOFEN
     Dosage: 500 MCG
     Route: 037
  4. BACLOFEN [Suspect]
     Active Substance: BACLOFEN
     Dosage: 550 MCG/DAY
     Route: 037
  5. BACLOFEN [Suspect]
     Active Substance: BACLOFEN
     Dosage: 600 MCG/DAY
     Route: 037
  6. BACLOFEN [Suspect]
     Active Substance: BACLOFEN
     Dosage: 660 MCG/DAY
     Route: 037

REACTIONS (3)
  - Pneumonia [Unknown]
  - Drug withdrawal syndrome [Unknown]
  - Implant site swelling [Unknown]
